FAERS Safety Report 9950267 (Version 1)
Quarter: 2014Q1

REPORT INFORMATION
  Report Type: Report from Study
  Country: US (occurrence: US)
  Receive Date: 20140304
  Receipt Date: 20140304
  Transmission Date: 20141002
  Serious: No
  Sender: FDA-Public Use
  Company Number: US-ABBVIE-13P-163-1068776-00

PATIENT
  Age: 75 Year
  Sex: Female

DRUGS (25)
  1. HUMIRA [Suspect]
     Indication: CROHN^S DISEASE
     Dates: start: 20130218
  2. LANTUS [Suspect]
     Indication: DIABETES MELLITUS
     Dosage: QPM
  3. LANTUS [Suspect]
     Dosage: QAM
  4. AZATHIOPRINE [Concomitant]
     Indication: CROHN^S DISEASE
  5. LANSOPRAZOLE [Concomitant]
     Indication: DYSPEPSIA
  6. HYDROCODONE/ACETAMINOPHEN [Concomitant]
     Indication: ARTHRITIS
     Dosage: 5/325 MG 2 DAILY
  7. HYDROCODONE/ACETAMINOPHEN [Concomitant]
     Indication: BACK PAIN
  8. LORAZEPAM [Concomitant]
     Indication: ANXIETY
  9. WARFARIN [Concomitant]
     Indication: HEART VALVE OPERATION
  10. WARFARIN [Concomitant]
  11. CRESTOR [Concomitant]
     Indication: BLOOD CHOLESTEROL INCREASED
  12. MAGNESIUM OXIDE [Concomitant]
     Indication: BLOOD MAGNESIUM
  13. CALCIUM CARBONATE [Concomitant]
     Indication: LABORATORY TEST
  14. METOPROLOL [Concomitant]
     Indication: BLOOD PRESSURE
  15. GEMFIBROZILO [Concomitant]
     Indication: BLOOD CHOLESTEROL
  16. DICYCLOMINE [Concomitant]
     Indication: CROHN^S DISEASE
  17. FUROSEMIDE [Concomitant]
     Indication: LOCAL SWELLING
  18. VITAMIN D [Concomitant]
     Indication: VITAMIN SUPPLEMENTATION
  19. VITAMIN B12 [Concomitant]
     Indication: VITAMIN SUPPLEMENTATION
  20. ZYRTEC [Concomitant]
     Indication: HYPERSENSITIVITY
  21. CENTRUM SILVER [Concomitant]
     Indication: VITAMIN SUPPLEMENTATION
  22. ALPHAGAN [Concomitant]
     Indication: GLAUCOMA
     Dosage: 1 DROP EACH EYE BID
  23. LATANOPROST [Concomitant]
     Indication: GLAUCOMA
     Dosage: GTT .005% EACH EYE DAILY
  24. CINNAMON [Concomitant]
     Indication: DIABETES MELLITUS
  25. ONGLYZA [Concomitant]
     Indication: DIABETES MELLITUS

REACTIONS (1)
  - Hypoaesthesia [Not Recovered/Not Resolved]
